FAERS Safety Report 7328742-9 (Version None)
Quarter: 2011Q1

REPORT INFORMATION
  Report Type: 
  Country: None (occurrence: None)
  Receive Date: 20110303
  Receipt Date: 20110218
  Transmission Date: 20110831
  Serious: Yes (Hospitalization)
  Sender: FDA-Public Use
  Company Number: PHHY2011DE14662

PATIENT
  Sex: Female
  Weight: 2.9 kg

DRUGS (2)
  1. AMLOCLAIR [Concomitant]
     Indication: HYPERTENSION
     Dosage: 5 MG, UNK
     Route: 064
     Dates: start: 20100301, end: 20100528
  2. RASILEZ [Suspect]
     Indication: HYPERTENSION
     Dosage: 150 MG, DAILY
     Route: 064
     Dates: start: 20080101, end: 20100528

REACTIONS (2)
  - DRUG EXPOSURE DURING PREGNANCY [None]
  - FOETAL HEART RATE ABNORMAL [None]
